FAERS Safety Report 8096566-3 (Version None)
Quarter: 2012Q1

REPORT INFORMATION
  Report Type: 
  Country: None (occurrence: None)
  Receive Date: 20120129
  Receipt Date: 20111107
  Transmission Date: 20120608
  Serious: No
  Sender: FDA-Public Use
  Company Number: US-ABBOTT-11P-163-0872592-00

PATIENT
  Sex: Female
  Weight: 86.26 kg

DRUGS (6)
  1. HUMIRA [Suspect]
     Indication: ANKYLOSING SPONDYLITIS
     Dates: start: 20100901, end: 20110401
  2. LAMICTAL [Concomitant]
     Indication: NEUROPATHY PERIPHERAL
  3. TRAMADOL HCL [Concomitant]
     Indication: ANKYLOSING SPONDYLITIS
  4. HUMIRA [Suspect]
     Dates: start: 20110401, end: 20110901
  5. OMEPRAZOLE [Concomitant]
     Indication: GASTROOESOPHAGEAL REFLUX DISEASE
  6. TYLENOL-500 [Concomitant]
     Indication: ANKYLOSING SPONDYLITIS

REACTIONS (1)
  - DRUG INEFFECTIVE [None]
